FAERS Safety Report 9017524 (Version 1)
Quarter: 2013Q1

REPORT INFORMATION
  Report Type: Spontaneous
  Country: US (occurrence: US)
  Receive Date: 20130117
  Receipt Date: 20130117
  Transmission Date: 20140127
  Serious: Yes (Hospitalization, Disabling, Other)
  Sender: FDA-Public Use
  Company Number: US-NICOBRDEV-2013-00434

PATIENT
  Age: 39 Year
  Sex: Male

DRUGS (1)
  1. FENTANYL CITRATE [Suspect]
     Indication: BACK PAIN
     Dosage: 2700 MCG, DAILY PUMP
     Route: 039

REACTIONS (8)
  - Infusion site granuloma [Recovered/Resolved]
  - Urinary retention [Recovered/Resolved]
  - Muscular weakness [Recovered/Resolved]
  - Back pain [Recovered/Resolved]
  - Pain in extremity [Recovered/Resolved]
  - Constipation [Recovered/Resolved]
  - Staphylococcus test positive [None]
  - Culture wound positive [None]
